FAERS Safety Report 4388948-8 (Version None)
Quarter: 2004Q3

REPORT INFORMATION
  Report Type: 
  Country: None (occurrence: None)
  Receive Date: 20040701
  Receipt Date: 20040701
  Transmission Date: 20050211
  Serious: Yes (Disabling)
  Sender: FDA-Public Use
  Company Number: None

PATIENT
  Age: 52 Year
  Sex: Female
  Weight: 67.586 kg

DRUGS (1)
  1. LIPITOR [Suspect]
     Dosage: 1 1 ORAL
     Route: 048
     Dates: start: 20040517, end: 20040530

REACTIONS (2)
  - ARTHRALGIA [None]
  - MYALGIA [None]
